FAERS Safety Report 17911528 (Version 2)
Quarter: 2020Q3

REPORT INFORMATION
  Report Type: Spontaneous
  Country: IT (occurrence: IT)
  Receive Date: 20200618
  Receipt Date: 20200817
  Transmission Date: 20201103
  Serious: Yes (Death)
  Sender: FDA-Public Use
  Company Number: IT-ROCHE-2623397

PATIENT
  Age: 44 Year
  Sex: Female
  Weight: 92 kg

DRUGS (15)
  1. RIXATHON [Suspect]
     Active Substance: RITUXIMAB
     Indication: PRODUCT USED FOR UNKNOWN INDICATION
     Route: 042
     Dates: start: 20191001, end: 20191101
  2. PANTOPRAZOLE [Concomitant]
     Active Substance: PANTOPRAZOLE
  3. BACTRIM [Concomitant]
     Active Substance: SULFAMETHOXAZOLE\TRIMETHOPRIM
  4. PROLIA [Concomitant]
     Active Substance: DENOSUMAB
  5. HUMALOG [Concomitant]
     Active Substance: INSULIN LISPRO
  6. ZOLOFT [Concomitant]
     Active Substance: SERTRALINE HYDROCHLORIDE
  7. TOUJEO [Concomitant]
     Active Substance: INSULIN GLARGINE
  8. ARANESP [Concomitant]
     Active Substance: DARBEPOETIN ALFA
  9. DELTACORTENE [Concomitant]
     Active Substance: PREDNISONE
  10. CALCITRIOL. [Concomitant]
     Active Substance: CALCITRIOL
  11. DIBASE [Concomitant]
     Active Substance: CHOLECALCIFEROL
  12. AMLODIPINE [Concomitant]
     Active Substance: AMLODIPINE BESYLATE
  13. LASIX [Concomitant]
     Active Substance: FUROSEMIDE
  14. CARDIOASPIRIN [Concomitant]
     Active Substance: ASPIRIN
  15. ALLOPURINOL. [Concomitant]
     Active Substance: ALLOPURINOL

REACTIONS (3)
  - Respiratory failure [Fatal]
  - Haemophilus infection [Fatal]
  - Hypogammaglobulinaemia [Fatal]

NARRATIVE: CASE EVENT DATE: 20200503
